FAERS Safety Report 13868359 (Version 1)
Quarter: 2017Q3

REPORT INFORMATION
  Report Type: Spontaneous
  Country: US (occurrence: US)
  Receive Date: 20170815
  Receipt Date: 20170815
  Transmission Date: 20171127
  Serious: No
  Sender: FDA-Public Use
  Company Number: GXBR2017US000818

PATIENT
  Sex: Female
  Weight: 39.2 kg

DRUGS (1)
  1. NITROFURANTOIN CAPSULES USP [Suspect]
     Active Substance: NITROFURANTOIN
     Indication: URINARY TRACT INFECTION
     Dosage: 100 MG, Q12H
     Route: 048
     Dates: start: 20161226

REACTIONS (2)
  - Drug ineffective [Unknown]
  - Arthralgia [Unknown]
